FAERS Safety Report 16538734 (Version 3)
Quarter: 2019Q3

REPORT INFORMATION
  Report Type: Spontaneous
  Country: US (occurrence: US)
  Receive Date: 20190708
  Receipt Date: 20190808
  Transmission Date: 20191004
  Serious: Yes (Other)
  Sender: FDA-Public Use
  Company Number: US-BAYER-2019-127980

PATIENT
  Age: 42 Year
  Sex: Female
  Weight: 133.79 kg

DRUGS (2)
  1. MIRENA [Suspect]
     Active Substance: LEVONORGESTREL
     Indication: CONTRACEPTION
     Dosage: 20 MCG/24HR, CONT
     Route: 015
     Dates: start: 20190424, end: 2019
  2. MIRENA [Suspect]
     Active Substance: LEVONORGESTREL
     Indication: CONTRACEPTION

REACTIONS (6)
  - Drug ineffective [None]
  - Genital haemorrhage [None]
  - Device expulsion [Recovered/Resolved]
  - Pregnancy with contraceptive device [None]
  - Abortion spontaneous [None]
  - Adverse event [None]

NARRATIVE: CASE EVENT DATE: 20190607
